FAERS Safety Report 6970775 (Version 2)
Quarter: 2014Q3

REPORT INFORMATION
  Report Type: Spontaneous
  Country: US (occurrence: US)
  Receive Date: 20090416
  Receipt Date: 20140707
  Transmission Date: 20150326
  Serious: Yes (Other)
  Sender: FDA-Public Use
  Company Number: US-PFIZER INC-2009194589

PATIENT
  Age: 55 Year
  Sex: Female
  Weight: 51.7 kg

DRUGS (7)
  1. SOLU-CORTEF [Suspect]
     Active Substance: HYDROCORTISONE SODIUM SUCCINATE
     Indication: ADRENAL INSUFFICIENCY
     Dosage: 100 MG
     Dates: start: 20090323
  2. CORTEF [Suspect]
     Active Substance: HYDROCORTISONE
     Indication: ADRENOCORTICAL INSUFFICIENCY ACUTE
     Dosage: 30 MG, DAILY
     Route: 048
     Dates: start: 2002
  3. XANAX [Concomitant]
     Active Substance: ALPRAZOLAM
  4. PRILOSEC [Concomitant]
     Active Substance: OMEPRAZOLE MAGNESIUM
  5. CORTEF [Suspect]
     Active Substance: HYDROCORTISONE
     Indication: ADRENAL INSUFFICIENCY
  6. SOLU-CORTEF [Suspect]
     Active Substance: HYDROCORTISONE SODIUM SUCCINATE
     Indication: ADRENOCORTICAL INSUFFICIENCY ACUTE
  7. PULMICORT FLEXHALER [Concomitant]
     Active Substance: BUDESONIDE
     Dosage: 180 UG, 4X/DAY

REACTIONS (7)
  - Dehydration [Unknown]
  - Wrong technique in drug usage process [Unknown]
  - Adrenal insufficiency [Unknown]
  - Dysphagia [Unknown]
  - Diverticulitis [Recovering/Resolving]
  - Infection [Unknown]
  - Weight decreased [Unknown]

NARRATIVE: CASE EVENT DATE: 2009
